FAERS Safety Report 13199916 (Version 1)
Quarter: 2017Q1

REPORT INFORMATION
  Report Type: Spontaneous
  Country: FR (occurrence: FR)
  Receive Date: 20170208
  Receipt Date: 20170208
  Transmission Date: 20170428
  Serious: Yes (Life-Threatening, Hospitalization, Other)
  Sender: FDA-Public Use
  Company Number: FR-MYLANLABS-2016M1058948

PATIENT

DRUGS (4)
  1. ALDACTAZINE [Concomitant]
     Active Substance: ALTHIAZIDE\SPIRONOLACTONE
     Indication: HYPERTENSION
     Dosage: UNK
     Route: 048
     Dates: start: 20161216
  2. MIANSERINE MYLAN 30 MG, COMPRIM? PELLICUL? [Suspect]
     Active Substance: MIANSERIN
     Dosage: 1 DF, QD
     Dates: start: 20161216, end: 20161216
  3. ZOLPIDEM [Suspect]
     Active Substance: ZOLPIDEM\ZOLPIDEM TARTRATE
     Indication: TINNITUS
     Dosage: UNK
  4. MIANSERINE MYLAN 30 MG, COMPRIM? PELLICUL? [Suspect]
     Active Substance: MIANSERIN
     Indication: PRODUCT USED FOR UNKNOWN INDICATION
     Dosage: 1 DF, QD
     Dates: start: 20161212, end: 20161212

REACTIONS (7)
  - Palpitations [Recovered/Resolved]
  - Syncope [Recovered/Resolved]
  - Bradycardia [Recovered/Resolved]
  - Fatigue [None]
  - Malaise [Recovered/Resolved]
  - Cardiac arrest [Recovered/Resolved]
  - Paroxysmal atrioventricular block [Recovered/Resolved]

NARRATIVE: CASE EVENT DATE: 20161212
